FAERS Safety Report 4518634-2 (Version None)
Quarter: 2004Q4

REPORT INFORMATION
  Report Type: 
  Country: None (occurrence: None)
  Receive Date: 20041104
  Receipt Date: 20031126
  Transmission Date: 20050328
  Serious: Yes (Disabling, Other)
  Sender: FDA-Public Use
  Company Number: USA030742558

PATIENT
  Age: 45 Year
  Sex: Female

DRUGS (4)
  1. VANCOMYCIN [Suspect]
     Indication: SEPSIS
     Dosage: 600 MG/2 DAY
     Dates: start: 20030616, end: 20030704
  2. PHENOBARBITAL TAB [Concomitant]
  3. TOPAMAX [Concomitant]
  4. CARAFATE [Concomitant]

REACTIONS (1)
  - HYPOACUSIS [None]
